FAERS Safety Report 8325210-2 (Version None)
Quarter: 2012Q2

REPORT INFORMATION
  Report Type: 
  Country: None (occurrence: None)
  Receive Date: 20120501
  Receipt Date: 20120418
  Transmission Date: 20120825
  Serious: Yes (Hospitalization)
  Sender: FDA-Public Use
  Company Number: JP-ROCHE-1042940

PATIENT
  Age: 76 Year
  Sex: Male

DRUGS (15)
  1. ACTEMRA [Suspect]
     Route: 041
     Dates: start: 20090722, end: 20090722
  2. ACTEMRA [Suspect]
     Route: 041
     Dates: start: 20090520, end: 20090520
  3. ACTEMRA [Suspect]
     Route: 041
     Dates: start: 20090617, end: 20090617
  4. PREDNISOLONE [Concomitant]
     Route: 048
     Dates: start: 20090422
  5. LORFENAMIN [Concomitant]
     Indication: RHEUMATOID ARTHRITIS
     Route: 048
  6. FAMOTIDINE [Concomitant]
     Indication: PROPHYLAXIS
     Route: 048
  7. ACTEMRA [Suspect]
     Indication: RHEUMATOID ARTHRITIS
     Route: 041
     Dates: start: 20090422, end: 20090422
  8. LIPIDIL [Concomitant]
     Indication: HYPERLIPIDAEMIA
     Route: 048
  9. PREDNISOLONE [Concomitant]
     Indication: RHEUMATOID ARTHRITIS
     Route: 048
     Dates: end: 20090421
  10. AMLODIPINE [Concomitant]
     Indication: HYPERTENSION
     Route: 048
  11. NORVASC [Concomitant]
     Indication: HYPERTENSION
     Route: 048
  12. ACTEMRA [Suspect]
     Route: 041
     Dates: start: 20100513, end: 20110124
  13. PREDNISOLONE [Concomitant]
     Dosage: UNCERTAIN DOSAGE (LESS THAN 5MG/DAY)
     Route: 048
  14. SELBEX [Concomitant]
     Indication: PROPHYLAXIS
     Route: 048
  15. DIOVAN [Concomitant]
     Indication: HYPERTENSION
     Route: 048

REACTIONS (1)
  - MESENTERIC PANNICULITIS [None]
